FAERS Safety Report 4618619-1 (Version None)
Quarter: 2005Q1

REPORT INFORMATION
  Report Type: 
  Country: None (occurrence: None)
  Receive Date: 20050324
  Receipt Date: 20050304
  Transmission Date: 20050727
  Serious: Yes (Hospitalization, Other)
  Sender: FDA-Public Use
  Company Number: USA040464050

PATIENT
  Age: 75 Year
  Sex: Female
  Weight: 57 kg

DRUGS (1)
  1. FORTEO [Suspect]
     Indication: OSTEOPOROSIS
     Dosage: 20 UG DAY
     Dates: start: 20040201, end: 20050105

REACTIONS (18)
  - ABNORMAL BEHAVIOUR [None]
  - ASTHENIA [None]
  - BLOOD GLUCOSE INCREASED [None]
  - CARDIAC DISORDER [None]
  - CONDITION AGGRAVATED [None]
  - CONSCIOUSNESS FLUCTUATING [None]
  - DYSPNOEA [None]
  - EMPHYSEMA [None]
  - FALL [None]
  - GAIT DISTURBANCE [None]
  - INJECTION SITE DISCOLOURATION [None]
  - PHARMACEUTICAL PRODUCT COMPLAINT [None]
  - PO2 DECREASED [None]
  - RESPIRATORY DISORDER [None]
  - TENDONITIS [None]
  - TREATMENT NONCOMPLIANCE [None]
  - WEIGHT DECREASED [None]
  - WRIST FRACTURE [None]
